FAERS Safety Report 16722982 (Version 4)
Quarter: 2019Q4

REPORT INFORMATION
  Report Type: Spontaneous
  Country: US (occurrence: US)
  Receive Date: 20190821
  Receipt Date: 20191202
  Transmission Date: 20200122
  Serious: Yes (Hospitalization, Other)
  Sender: FDA-Public Use
  Company Number: PHEH2019US034352

PATIENT
  Sex: Male
  Weight: 43 kg

DRUGS (1)
  1. KYMRIAH [Suspect]
     Active Substance: TISAGENLECLEUCEL
     Indication: ACUTE LYMPHOCYTIC LEUKAEMIA
     Dosage: 43 ML, ONCE/SINGLE
     Route: 042
     Dates: start: 20190521, end: 20190521

REACTIONS (3)
  - Pyrexia [Unknown]
  - Drug ineffective [Unknown]
  - Cytokine release syndrome [Unknown]
